FAERS Safety Report 7189854-6 (Version None)
Quarter: 2010Q4

REPORT INFORMATION
  Report Type: 
  Country: None (occurrence: None)
  Receive Date: 20101123
  Receipt Date: 20100913
  Transmission Date: 20110411
  Serious: No
  Sender: FDA-Public Use
  Company Number: 018711

PATIENT
  Sex: Male

DRUGS (1)
  1. CIMZIA [Suspect]
     Dosage: SUBCUTANEOUS
     Route: 058

REACTIONS (2)
  - HEADACHE [None]
  - HYPERSOMNIA [None]
